FAERS Safety Report 12854115 (Version 2)
Quarter: 2016Q4

REPORT INFORMATION
  Report Type: Spontaneous
  Country: US (occurrence: US)
  Receive Date: 20161017
  Receipt Date: 20161115
  Transmission Date: 20170207
  Serious: No
  Sender: FDA-Public Use
  Company Number: US-PFIZER INC-2016479085

PATIENT
  Age: 50 Year
  Sex: Male

DRUGS (2)
  1. ZOLOFT [Suspect]
     Active Substance: SERTRALINE HYDROCHLORIDE
     Indication: DISTURBANCE IN ATTENTION
     Dosage: 100 MG, DAILY
     Dates: start: 201410, end: 20161015
  2. ZOLOFT [Suspect]
     Active Substance: SERTRALINE HYDROCHLORIDE
     Indication: STRESS
     Dosage: 50 MG, DAILY
     Dates: start: 201303, end: 201409

REACTIONS (3)
  - Amnesia [Not Recovered/Not Resolved]
  - Syncope [Not Recovered/Not Resolved]
  - Tremor [Recovered/Resolved]

NARRATIVE: CASE EVENT DATE: 201511
